FAERS Safety Report 9463019 (Version 2)
Quarter: 2013Q3

REPORT INFORMATION
  Report Type: Report from Study
  Country: US (occurrence: US)
  Receive Date: 20130816
  Receipt Date: 20130816
  Transmission Date: 20140515
  Serious: Yes (Hospitalization, Other)
  Sender: FDA-Public Use
  Company Number: US-US-EMD SERONO, INC.-7224654

PATIENT
  Age: 56 Year
  Sex: Male

DRUGS (1)
  1. REBIF [Suspect]
     Indication: PRODUCT USED FOR UNKNOWN INDICATION
     Route: 058
     Dates: start: 20090608

REACTIONS (4)
  - Intracranial aneurysm [Not Recovered/Not Resolved]
  - Convulsion [Recovered/Resolved]
  - Laceration [Unknown]
  - Headache [Not Recovered/Not Resolved]
